FAERS Safety Report 5494091-7 (Version None)
Quarter: 2007Q4

REPORT INFORMATION
  Report Type: 
  Country: None (occurrence: None)
  Receive Date: 20071022
  Receipt Date: 20071015
  Transmission Date: 20080405
  Serious: Yes (Other)
  Sender: FDA-Public Use
  Company Number: CHPA2007US10738

PATIENT
  Age: 56 Year
  Sex: Female
  Weight: 68 kg

DRUGS (1)
  1. BUCKLEY'S UNKNOWN (NCH)(UNKNOWN) UNKNOWN [Suspect]
     Indication: ASTHMA
     Dosage: 0.5 TSP, ORAL
     Route: 048
     Dates: start: 20071015

REACTIONS (4)
  - COLD SWEAT [None]
  - EAR DISORDER [None]
  - HYPOAESTHESIA ORAL [None]
  - THROAT TIGHTNESS [None]
